FAERS Safety Report 11070360 (Version 1)
Quarter: 2015Q2

REPORT INFORMATION
  Report Type: Spontaneous
  Country: US (occurrence: US)
  Receive Date: 20150427
  Receipt Date: 20150427
  Transmission Date: 20150821
  Serious: Yes (Other)
  Sender: FDA-Public Use
  Company Number: US-BAYER-2015-156815

PATIENT
  Age: 68 Year
  Sex: Female
  Weight: 77.98 kg

DRUGS (2)
  1. BAYER GENUINE ASPIRIN [Suspect]
     Active Substance: ASPIRIN
     Indication: ISCHAEMIC HEART DISEASE PROPHYLAXIS
     Dosage: UNK
  2. BAYER GENUINE ASPIRIN [Suspect]
     Active Substance: ASPIRIN
     Indication: MYOCARDIAL INFARCTION
     Dosage: 1 DF, PRN
     Route: 048
     Dates: start: 201411, end: 201411

REACTIONS (4)
  - Medication error [None]
  - Choking [Recovered/Resolved]
  - Vomiting [Recovered/Resolved]
  - Wrong technique in drug usage process [None]

NARRATIVE: CASE EVENT DATE: 201411
